FAERS Safety Report 6503580-5 (Version None)
Quarter: 2009Q4

REPORT INFORMATION
  Report Type: 
  Country: None (occurrence: None)
  Receive Date: 20091217
  Receipt Date: 20091208
  Transmission Date: 20100525
  Serious: Yes (Hospitalization)
  Sender: FDA-Public Use
  Company Number: US-AMGEN-QUU379140

PATIENT
  Sex: Female

DRUGS (1)
  1. ENBREL [Suspect]
     Indication: RHEUMATOID ARTHRITIS

REACTIONS (6)
  - ANXIETY [None]
  - DEPRESSION [None]
  - DYSPEPSIA [None]
  - HYPERHIDROSIS [None]
  - MALAISE [None]
  - PAIN IN EXTREMITY [None]
